FAERS Safety Report 25014844 (Version 2)
Quarter: 2025Q1

REPORT INFORMATION
  Report Type: Report from Study
  Country: CO (occurrence: CO)
  Receive Date: 20250226
  Receipt Date: 20250318
  Transmission Date: 20250409
  Serious: Yes (Hospitalization)
  Sender: EISAI
  Company Number: CO-Eisai-EC-2025-184852

PATIENT
  Age: 59 Year
  Sex: Male
  Weight: 62.00 kg

DRUGS (3)
  1. LENVIMA [Suspect]
     Active Substance: LENVATINIB
     Indication: Thyroid cancer
     Dates: start: 20250215, end: 20250216
  2. LENVIMA [Suspect]
     Active Substance: LENVATINIB
     Dates: start: 20250226, end: 20250306
  3. LENVIMA [Suspect]
     Active Substance: LENVATINIB
     Dates: start: 20250307

REACTIONS (5)
  - Dyspnoea [Recovering/Resolving]
  - Swelling [Recovering/Resolving]
  - Pain [Recovering/Resolving]
  - Prescribed underdose [Recovering/Resolving]
  - Dizziness [Recovering/Resolving]

NARRATIVE: CASE EVENT DATE: 20250217
